FAERS Safety Report 14994426 (Version 1)
Quarter: 2018Q2

REPORT INFORMATION
  Report Type: Spontaneous
  Country: US (occurrence: US)
  Receive Date: 20180521
  Receipt Date: 20180521
  Transmission Date: 20180711
  Serious: Yes (Other)
  Sender: FDA-Public Use
  Company Number: None

PATIENT
  Age: 81 Year
  Sex: Female

DRUGS (1)
  1. DULERA [Suspect]
     Active Substance: FORMOTEROL FUMARATE DIHYDRATE\MOMETASONE FUROATE
     Indication: ASTHMA
     Dates: start: 20180430, end: 20180501

REACTIONS (4)
  - Oral discomfort [None]
  - Device issue [None]
  - Oral pain [None]
  - Dysphagia [None]

NARRATIVE: CASE EVENT DATE: 20180501
